FAERS Safety Report 8175404 (Version 4)
Quarter: 2013Q1

REPORT INFORMATION
  Report Type: Spontaneous
  Country: JP (occurrence: JP)
  Receive Date: 20111011
  Receipt Date: 20130130
  Transmission Date: 20140127
  Serious: Yes (Other)
  Sender: FDA-Public Use
  Company Number: JP-BAYER-2011-097062

PATIENT
  Age: 70 Year
  Sex: Male

DRUGS (4)
  1. NEXAVAR [Suspect]
     Indication: HEPATOCELLULAR CARCINOMA
     Dosage: DAILY DOSE 400 MG
     Route: 048
     Dates: start: 20100929, end: 20110104
  2. NEXAVAR [Suspect]
     Indication: HEPATOCELLULAR CARCINOMA
     Dosage: DAILY DOSE 600 MG
     Route: 048
     Dates: start: 20110105
  3. CASODEX [Suspect]
     Indication: PROSTATE CANCER
     Dosage: DAILY DOSE 80 MG
     Route: 048
     Dates: start: 20110624
  4. LEUPLIN [Suspect]
     Indication: PROSTATE CANCER
     Dosage: 3.75 MG, Q1MON
     Route: 058
     Dates: start: 20100917

REACTIONS (1)
  - Hepatitis B [Recovered/Resolved]
